FAERS Safety Report 5942620-9 (Version None)
Quarter: 2008Q4

REPORT INFORMATION
  Report Type: 
  Country: None (occurrence: None)
  Receive Date: 20081103
  Receipt Date: 20081020
  Transmission Date: 20090506
  Serious: Yes (Hospitalization, Disabling)
  Sender: FDA-Public Use
  Company Number: DSJ-2008-12241

PATIENT
  Age: 64 Year
  Sex: Female
  Weight: 53.4 kg

DRUGS (10)
  1. OLMESARTAN MEDOXOMIL [Suspect]
     Indication: ESSENTIAL HYPERTENSION
     Dosage: 20 MG (20 MG, 1 IN 1 D), PER ORAL;  10 MG (10 MG, 1 IN 1 D), PER ORAL
     Route: 048
     Dates: start: 20061024
  2. LIPITOR [Suspect]
     Dosage: 10 MG (10 MG, 1 IN 1 D) PER ORAL
     Route: 048
     Dates: end: 20081005
  3. COSPANON (FLOPROPIONE) (FLOPROPIONE) [Concomitant]
  4. NOLEPTAN (FOMINOBEN HYDROCHLORIDE) (FOMINOBEN HYDROCHLORIDE) [Concomitant]
  5. CLEANAL (FUDOSTEINE) (FUDOSTEINE) [Concomitant]
  6. ALESION (EPINASTINE HYDROCHLORIDE) (EPINASTINE HYDROCHLORIDE) [Concomitant]
  7. AMARYL [Concomitant]
  8. URSO (URSODEOXYCHOLIC ACID) (URSODEOXYCHOLIC ACID) [Concomitant]
  9. BAYASPIRIN (ACETYLSALICYLIC ACID)(ACETYLSALICYLIC ACID) [Concomitant]
  10. ZETIA [Concomitant]

REACTIONS (7)
  - FALL [None]
  - HYPOAESTHESIA [None]
  - OSTEOARTHRITIS [None]
  - PAIN [None]
  - SPINAL COLUMN STENOSIS [None]
  - SPINAL CORD INJURY CERVICAL [None]
  - SYNCOPE [None]
